FAERS Safety Report 17447365 (Version 1)
Quarter: 2020Q1

REPORT INFORMATION
  Report Type: Spontaneous
  Country: CN (occurrence: CN)
  Receive Date: 20200221
  Receipt Date: 20200221
  Transmission Date: 20200409
  Serious: No
  Sender: FDA-Public Use
  Company Number: CN-B.BRAUN MEDICAL INC.-2080781

PATIENT
  Age: 75 Year
  Sex: Male
  Weight: 58 kg

DRUGS (3)
  1. ALANYL GLUTAMINE INJECTION [Concomitant]
     Route: 041
     Dates: start: 20191209, end: 20191209
  2. COMPOUND AMINO ACID INJECTION (18AA-II) [Concomitant]
     Active Substance: AMINO ACIDS, SOURCE UNSPECIFIED
     Route: 041
     Dates: start: 20191209, end: 20191209
  3. NUTRILIPID I.V. FAT EMULSION [Suspect]
     Active Substance: SOYBEAN OIL
     Indication: ADJUVANT THERAPY
     Route: 041
     Dates: start: 20191209, end: 20191209

REACTIONS (2)
  - Pruritus [Recovered/Resolved]
  - Rash papular [Recovered/Resolved]
